FAERS Safety Report 13981499 (Version 1)
Quarter: 2017Q3

REPORT INFORMATION
  Report Type: Spontaneous
  Country: US (occurrence: US)
  Receive Date: 20170917
  Receipt Date: 20170917
  Transmission Date: 20171128
  Serious: Yes (Other)
  Sender: FDA-Public Use
  Company Number: None

PATIENT
  Age: 37 Year
  Sex: Female
  Weight: 57.6 kg

DRUGS (18)
  1. CALCIUM WITH D3 [Concomitant]
  2. FISH OIL [Concomitant]
     Active Substance: FISH OIL
  3. RANITIDINE. [Concomitant]
     Active Substance: RANITIDINE
  4. MULTIPLE VIT [Concomitant]
  5. LIDODERM [Concomitant]
     Active Substance: LIDOCAINE
  6. ALPRAZOLAM. [Concomitant]
     Active Substance: ALPRAZOLAM
  7. VITAMIN D3 [Concomitant]
     Active Substance: CHOLECALCIFEROL
  8. GABAPENTIN. [Concomitant]
     Active Substance: GABAPENTIN
  9. LEVETIRACETAM. [Concomitant]
     Active Substance: LEVETIRACETAM
  10. BUTRANS [Suspect]
     Active Substance: BUPRENORPHINE
     Indication: SPINAL COLUMN INJURY
     Dosage: ?          QUANTITY:4 PATCH(ES);OTHER FREQUENCY:1 PATCH FOR 7 DAYS;?
     Route: 062
     Dates: start: 20170901, end: 20170914
  11. BIRTH CONTROL [Concomitant]
     Active Substance: UNSPECIFIED INGREDIENT
  12. ADDERALL [Concomitant]
     Active Substance: AMPHETAMINE ASPARTATE\AMPHETAMINE SULFATE\DEXTROAMPHETAMINE SACCHARATE\DEXTROAMPHETAMINE SULFATE
  13. DICLOFENAC GEL [Concomitant]
     Active Substance: DICLOFENAC
  14. LIDOCAINE. [Concomitant]
     Active Substance: LIDOCAINE
  15. VITAMIN C [Concomitant]
     Active Substance: ASCORBIC ACID
  16. BUTRANS [Suspect]
     Active Substance: BUPRENORPHINE
     Indication: FIBROMYALGIA
     Dosage: ?          QUANTITY:4 PATCH(ES);OTHER FREQUENCY:1 PATCH FOR 7 DAYS;?
     Route: 062
     Dates: start: 20170901, end: 20170914
  17. VALTEX [Concomitant]
  18. ALEVE [Concomitant]
     Active Substance: NAPROXEN SODIUM

REACTIONS (16)
  - Eating disorder [None]
  - Nightmare [None]
  - Withdrawal syndrome [None]
  - Spinal pain [None]
  - Insomnia [None]
  - Chills [None]
  - Nausea [None]
  - Visual impairment [None]
  - Depression [None]
  - Body temperature increased [None]
  - Presyncope [None]
  - Bone pain [None]
  - Night sweats [None]
  - Dizziness [None]
  - Hyperhidrosis [None]
  - Feeling of body temperature change [None]

NARRATIVE: CASE EVENT DATE: 20170901
